FAERS Safety Report 19254553 (Version 1)
Quarter: 2021Q2

REPORT INFORMATION
  Report Type: Report from Study
  Country: BE (occurrence: BE)
  Receive Date: 20210513
  Receipt Date: 20210513
  Transmission Date: 20210717
  Serious: Yes (Hospitalization, Other)
  Sender: FDA-Public Use
  Company Number: BE-TEVA-2021-BE-1910828

PATIENT
  Age: 54 Year
  Sex: Female

DRUGS (1)
  1. COPAXONE [Suspect]
     Active Substance: GLATIRAMER ACETATE
     Indication: MULTIPLE SCLEROSIS
     Dates: start: 20160215, end: 20210305

REACTIONS (5)
  - Dyspnoea [Recovered/Resolved]
  - Resuscitation [Recovered/Resolved]
  - Drug hypersensitivity [Recovered/Resolved]
  - Immediate post-injection reaction [Recovered/Resolved]
  - Cyanosis [Recovered/Resolved]

NARRATIVE: CASE EVENT DATE: 20210503
